FAERS Safety Report 8587557-4 (Version None)
Quarter: 2012Q3

REPORT INFORMATION
  Report Type: 
  Country: None (occurrence: None)
  Receive Date: 20120810
  Receipt Date: 20120803
  Transmission Date: 20120928
  Serious: Yes (Hospitalization, Other)
  Sender: FDA-Public Use
  Company Number: BR-ROCHE-1023239

PATIENT
  Sex: Female
  Weight: 75 kg

DRUGS (4)
  1. OMALIZUMAB [Suspect]
     Indication: ASTHMA
  2. BUDESONIDE AND FORMOTEROL FUMARATE [Suspect]
     Indication: ASTHMA
     Dosage: 12/400 UG
  3. NASONEX [Concomitant]
  4. FLUMIL (ACETYLCYSTEINE) [Concomitant]

REACTIONS (8)
  - WEIGHT INCREASED [None]
  - WHEEZING [None]
  - ASTHMA [None]
  - DYSPNOEA [None]
  - ABDOMINAL DISTENSION [None]
  - FATIGUE [None]
  - CHEST PAIN [None]
  - MALAISE [None]
